FAERS Safety Report 6733365-6 (Version None)
Quarter: 2010Q2

REPORT INFORMATION
  Report Type: 
  Country: None (occurrence: None)
  Receive Date: 20100520
  Receipt Date: 20100511
  Transmission Date: 20101027
  Serious: Yes (Hospitalization, Other)
  Sender: FDA-Public Use
  Company Number: US-ABBOTT-10P-163-0641666-00

PATIENT
  Age: 35 Year
  Sex: Male

DRUGS (4)
  1. HUMIRA [Suspect]
     Indication: PSORIASIS
     Dates: start: 20080205, end: 20080703
  2. HUMIRA [Suspect]
     Dates: start: 20080703
  3. HUMIRA [Suspect]
     Dates: end: 20090901
  4. PREDNISONE TAB [Concomitant]
     Indication: DRUG USE FOR UNKNOWN INDICATION

REACTIONS (45)
  - ACINETOBACTER BACTERAEMIA [None]
  - ANXIETY [None]
  - ARTHRALGIA [None]
  - ASTHENIA [None]
  - BACK PAIN [None]
  - BLOOD CREATININE INCREASED [None]
  - BLOOD GLUCOSE INCREASED [None]
  - BLOOD PRESSURE INCREASED [None]
  - BLOOD UREA INCREASED [None]
  - CONJUNCTIVITIS [None]
  - CONSTIPATION [None]
  - COUGH [None]
  - DEHYDRATION [None]
  - DYSPNOEA [None]
  - FATIGUE [None]
  - GINGIVAL ERYTHEMA [None]
  - GINGIVAL SWELLING [None]
  - HEADACHE [None]
  - HYPOKALAEMIA [None]
  - HYPOMAGNESAEMIA [None]
  - INAPPROPRIATE SCHEDULE OF DRUG ADMINISTRATION [None]
  - INFLUENZA LIKE ILLNESS [None]
  - INSOMNIA [None]
  - LUNG INFECTION PSEUDOMONAL [None]
  - NECK PAIN [None]
  - PNEUMONIA [None]
  - PNEUMONIA BACTERIAL [None]
  - PNEUMONIA BLASTOMYCES [None]
  - PSEUDOMONAL BACTERAEMIA [None]
  - PSORIASIS [None]
  - PSORIATIC ARTHROPATHY [None]
  - PYREXIA [None]
  - RECTAL HAEMORRHAGE [None]
  - RENAL FAILURE ACUTE [None]
  - RESPIRATORY FAILURE [None]
  - REVERSIBLE POSTERIOR LEUKOENCEPHALOPATHY SYNDROME [None]
  - RHINORRHOEA [None]
  - SINUS HEADACHE [None]
  - SINUSITIS [None]
  - STRESS [None]
  - TOOTH INFECTION [None]
  - TOOTHACHE [None]
  - WEIGHT DECREASED [None]
  - WHEEZING [None]
  - WHITE BLOOD CELL COUNT INCREASED [None]
